FAERS Safety Report 26189638 (Version 1)
Quarter: 2025Q4

REPORT INFORMATION
  Report Type: Spontaneous
  Country: GB (occurrence: GB)
  Receive Date: 20251223
  Receipt Date: 20251223
  Transmission Date: 20260118
  Serious: Yes (Other)
  Sender: SANOFI AVENTIS
  Company Number: None

PATIENT
  Age: 70 Year
  Sex: Male
  Weight: 90 kg

DRUGS (36)
  1. INSULIN ASPART [Suspect]
     Active Substance: INSULIN ASPART
     Dosage: 100 UNITS/ML SOLUTION FOR INJECTION 3ML PREFILLEDSOLOSTAR
     Dates: start: 20251024, end: 20251204
  2. HYDROXOCOBALAMIN [Concomitant]
     Active Substance: HYDROXOCOBALAMIN
     Indication: Ill-defined disorder
     Dosage: 1 MG, Q3M
     Route: 030
     Dates: start: 20251016
  3. BUMETANIDE [Concomitant]
     Active Substance: BUMETANIDE
     Indication: Ill-defined disorder
     Dosage: 01 DF, QD (TAKE ONE EACH MORNING)
     Dates: start: 20250711
  4. INSULIN NOS [Concomitant]
     Active Substance: INSULIN NOS
     Indication: Ill-defined disorder
     Dosage: UNK
     Dates: start: 20251127
  5. ACYCLOVIR [Concomitant]
     Active Substance: ACYCLOVIR
     Indication: Ill-defined disorder
     Dosage: 01 DF, BID
     Dates: start: 20250711
  6. Altraplen compact [Concomitant]
     Indication: Ill-defined disorder
     Dosage: DRINK 1-2 CARTONS A DAY. REPLACES FRESUBIN ENERGY
     Dates: start: 20250711
  7. AMILORIDE HYDROCHLORIDE [Concomitant]
     Active Substance: AMILORIDE HYDROCHLORIDE
     Indication: Ill-defined disorder
     Dosage: 0.5 DF, QD (TAKE HALF TABLET IN THE MORNING)
     Dates: start: 20250711
  8. AMITRIPTYLINE HYDROCHLORIDE [Concomitant]
     Active Substance: AMITRIPTYLINE HYDROCHLORIDE
     Indication: Ill-defined disorder
     Dosage: 01 DF, HS
     Dates: start: 20250711
  9. ASPIRIN [Concomitant]
     Active Substance: ASPIRIN
     Indication: Ill-defined disorder
     Dosage: 01 DF, QD (ONE TO BE TAKEN ONCE DAILY)
     Dates: start: 20250711
  10. BECONASE AQ [Concomitant]
     Active Substance: BECLOMETHASONE DIPROPIONATE MONOHYDRATE
     Indication: Ill-defined disorder
     Dosage: TWO PUFFS TWICE DAILY
     Dates: start: 20250711
  11. CANAGLIFLOZIN [Concomitant]
     Active Substance: CANAGLIFLOZIN
     Indication: Ill-defined disorder
     Dosage: 01 DF, QD, (TAKE ONE DAILY)
     Dates: start: 20250711
  12. BECLOMETHASONE DIPROPIONATE [Concomitant]
     Active Substance: BECLOMETHASONE DIPROPIONATE
     Indication: Ill-defined disorder
     Dosage: INHALE TWO PUFFS TWICE DAILY
     Route: 055
     Dates: start: 20250711
  13. CREON [Concomitant]
     Active Substance: PANCRELIPASE AMYLASE\PANCRELIPASE LIPASE\PANCRELIPASE PROTEASE
     Indication: Ill-defined disorder
     Dosage: TWO TO BE TAKEN WITH MEALS . THREE TO BE TAKEN ...
     Dates: start: 20250711
  14. DIHYDROCODEINE [Concomitant]
     Active Substance: DIHYDROCODEINE
     Indication: Pain
     Dosage: 1-2 TDS PRN FOR PAIN
     Dates: start: 20250711
  15. DIHYDROCODEINE [Concomitant]
     Active Substance: DIHYDROCODEINE
     Indication: Ill-defined disorder
  16. DOXAZOSIN [Concomitant]
     Active Substance: DOXAZOSIN MESYLATE
     Indication: Ill-defined disorder
     Dosage: 04 DF, QD/TAKE FOUR DAILY
     Dates: start: 20250711
  17. EZETIMIBE [Concomitant]
     Active Substance: EZETIMIBE
     Indication: Ill-defined disorder
     Dosage: 01 DF, QD/TAKE ONE DAILY
     Dates: start: 20250711
  18. FINASTERIDE [Concomitant]
     Active Substance: FINASTERIDE
     Indication: Ill-defined disorder
     Dosage: 01 DF, QD
     Dates: start: 20250711
  19. NITROGLYCERIN [Concomitant]
     Active Substance: NITROGLYCERIN
     Indication: Ill-defined disorder
     Dosage: ONE PUFF UNDER THE TONGUE AS NEEDED
     Route: 060
     Dates: start: 20250711
  20. LANSOPRAZOLE [Concomitant]
     Active Substance: LANSOPRAZOLE
     Indication: Ill-defined disorder
     Dosage: UNK, QD, 1-2 EVERY DAY
     Dates: start: 20250711
  21. LANTUS [Concomitant]
     Active Substance: INSULIN GLARGINE
     Indication: Ill-defined disorder
     Dosage: USE AS DIRECTED
     Dates: start: 20250711
  22. POLYETHYLENE GLYCOL 3350\POTASSIUM CHLORIDE\SODIUM BICARBONATE\SODIUM [Concomitant]
     Active Substance: POLYETHYLENE GLYCOL 3350\POTASSIUM CHLORIDE\SODIUM BICARBONATE\SODIUM CHLORIDE
     Indication: Ill-defined disorder
     Dosage: 1-23DAILY WHEN REQUIRED
     Dates: start: 20250711
  23. LERCANIDIPINE HYDROCHLORIDE [Concomitant]
     Active Substance: LERCANIDIPINE HYDROCHLORIDE
     Indication: Ill-defined disorder
     Dosage: TAKE ONE DAILY
     Dates: start: 20250711
  24. LEVOTHYROXINE [Concomitant]
     Active Substance: LEVOTHYROXINE
     Indication: Ill-defined disorder
     Dosage: 01 DF, QD/TAKE ONE EACH MORNING
     Dates: start: 20250711
  25. METFORMIN [Concomitant]
     Active Substance: METFORMIN HYDROCHLORIDE
     Indication: Ill-defined disorder
     Dosage: TAKE ONE BEFORE BREAKFAST
     Dates: start: 20250711
  26. METOCLOPRAMIDE [Concomitant]
     Active Substance: METOCLOPRAMIDE
     Indication: Ill-defined disorder
     Dosage: TAKE ONE 3 TIMES/DAY WHEN REQUIRED FOR NAUSEA A...
     Dates: start: 20250711
  27. MOMETASONE [Concomitant]
     Active Substance: MOMETASONE
     Indication: Ill-defined disorder
     Dosage: USE ONE TO TWO SPRAYS INTO EACH NOSTRIL ONCE A DAY
     Dates: start: 20250711
  28. MORPHINE SULFATE [Concomitant]
     Active Substance: MORPHINE SULFATE
     Indication: Ill-defined disorder
     Dosage: 5-10ML TDS PRN FOR PAIN
     Dates: start: 20250711
  29. NOVORAPID [Concomitant]
     Active Substance: INSULIN ASPART
     Indication: Ill-defined disorder
     Dosage: FOR INJECTION
     Dates: start: 20250711
  30. RAMIPRIL [Concomitant]
     Active Substance: RAMIPRIL
     Indication: Ill-defined disorder
     Dosage: 01 DF, QD/TAKE ONE DAILY
     Dates: start: 20250711
  31. ALBUTEROL [Concomitant]
     Active Substance: ALBUTEROL
     Indication: Ill-defined disorder
     Dosage: INHALE 2 DOSES AS NEEDED
     Route: 055
     Dates: start: 20250711
  32. SIMVASTATIN [Concomitant]
     Active Substance: SIMVASTATIN
     Indication: Ill-defined disorder
     Dosage: 01 DF, HS
     Dates: start: 20250711
  33. SYSTANE ULTRA [Concomitant]
     Active Substance: POLYETHYLENE GLYCOL 400\PROPYLENE GLYCOL
     Indication: Ill-defined disorder
     Dosage: 1-2 DROPS TWICE DAILY TO AFFECTED EYES.
     Dates: start: 20250711
  34. TADALAFIL [Concomitant]
     Active Substance: TADALAFIL
     Indication: Ill-defined disorder
     Dosage: USE AS DIRECTED
     Dates: start: 20250711
  35. INSULIN ASPART [Concomitant]
     Active Substance: INSULIN ASPART
     Indication: Ill-defined disorder
     Dosage: FOR INJECTION
     Dates: start: 20251024, end: 20251204
  36. GLUCOGEL [Concomitant]
     Indication: Ill-defined disorder
     Dosage: USE AS DIRECTED
     Dates: start: 20251113

REACTIONS (3)
  - Illness [Recovered/Resolved]
  - Diarrhoea [Recovered/Resolved]
  - Nausea [Recovered/Resolved]
